FAERS Safety Report 8684707 (Version 3)
Quarter: 2013Q1

REPORT INFORMATION
  Report Type: Spontaneous
  Country: US (occurrence: US)
  Receive Date: 20120726
  Receipt Date: 20130215
  Transmission Date: 20140127
  Serious: Yes (Other)
  Sender: FDA-Public Use
  Company Number: US-ASTRAZENECA-2011SE34111

PATIENT
  Age: 65 Year
  Sex: Female

DRUGS (4)
  1. SEROQUEL XR [Suspect]
     Indication: INSOMNIA
     Route: 048
  2. SEROQUEL XR [Suspect]
     Indication: SLEEP DISORDER
     Route: 048
  3. SEROQUEL XR [Suspect]
     Indication: INSOMNIA
     Route: 048
  4. SEROQUEL XR [Suspect]
     Indication: SLEEP DISORDER
     Route: 048

REACTIONS (9)
  - Wrist fracture [Unknown]
  - Hand fracture [Unknown]
  - Sleep disorder [Unknown]
  - Insomnia [Unknown]
  - Impaired driving ability [Unknown]
  - Pain [Unknown]
  - Weight increased [Unknown]
  - Off label use [Unknown]
  - Drug ineffective for unapproved indication [Unknown]
